FAERS Safety Report 12903512 (Version 5)
Quarter: 2017Q1

REPORT INFORMATION
  Report Type: Report from Study
  Country: CH (occurrence: CH)
  Receive Date: 20161102
  Receipt Date: 20170214
  Transmission Date: 20170428
  Serious: Yes (Hospitalization)
  Sender: FDA-Public Use
  Company Number: CH-ROCHE-1848958

PATIENT
  Age: 64 Year
  Sex: Male
  Weight: 80 kg

DRUGS (79)
  1. OBINUTUZUMAB [Suspect]
     Active Substance: OBINUTUZUMAB
     Dosage: CYCLE 2 DAY 1; PLANNED 1000 MG , ACTUAL DOSE  1000 MG ?PLANNED INFUSION RATE 400 ACTUAL INFUSION RAT
     Route: 042
     Dates: start: 20131211, end: 20131211
  2. FLUDARABINE [Suspect]
     Active Substance: FLUDARABINE PHOSPHATE
     Dosage: CYCLE 2 DAY3  ; PLANNED DOSE 25 MG/M2 , ACTUAL DOSE  25 MG/M2
     Route: 042
     Dates: start: 20131213, end: 20131213
  3. FLUDARABINE [Suspect]
     Active Substance: FLUDARABINE PHOSPHATE
     Dosage: CYCLE 3 DAY1 ; PLANNED DOSE 25 MG/M2 , ACTUAL DOSE  25 MG/M2
     Route: 042
     Dates: start: 20140108, end: 20140108
  4. FLUDARABINE [Suspect]
     Active Substance: FLUDARABINE PHOSPHATE
     Dosage: CYCLE 3 DAY2 ; PLANNED DOSE 25 MG/M2 , ACTUAL DOSE  25 MG/M2
     Route: 042
     Dates: start: 20140109, end: 20140109
  5. CYCLOPHOSPHAMIDE. [Suspect]
     Active Substance: CYCLOPHOSPHAMIDE
     Indication: CHRONIC LYMPHOCYTIC LEUKAEMIA
     Dosage: CYCLE 1 DAY1; PLANNED DOSE 250 MG/M2 , ACTUAL DOSE  250 MG/M2?MOST RECENT DOSE ON 04/APR/2014
     Route: 042
     Dates: start: 20131113, end: 20131113
  6. CYCLOPHOSPHAMIDE. [Suspect]
     Active Substance: CYCLOPHOSPHAMIDE
     Dosage: CYCLE 4 DAY3 ; PLANNED DOSE 250 MG/M2 , ACTUAL DOSE  250 MG/M2
     Route: 042
     Dates: start: 20140207, end: 20140207
  7. CYCLOPHOSPHAMIDE. [Suspect]
     Active Substance: CYCLOPHOSPHAMIDE
     Dosage: CYCLE 5 DAY1 ; PLANNED DOSE 250 MG/M2 , ACTUAL DOSE  250 MG/M2
     Route: 042
     Dates: start: 20140304, end: 20140304
  8. IMODIUM [Concomitant]
     Active Substance: LOPERAMIDE HYDROCHLORIDE
     Route: 048
     Dates: start: 20140409, end: 20140603
  9. DEXPANTHENOL. [Concomitant]
     Active Substance: DEXPANTHENOL
     Route: 048
     Dates: start: 20140312, end: 20140402
  10. FLUCONAZOL [Concomitant]
     Active Substance: FLUCONAZOLE
     Route: 048
     Dates: start: 20140605, end: 20140610
  11. EMEND [Concomitant]
     Active Substance: APREPITANT
     Route: 048
     Dates: start: 20140206, end: 20140207
  12. EMEND [Concomitant]
     Active Substance: APREPITANT
     Route: 048
     Dates: start: 20140403, end: 20140404
  13. SYMBICORT [Concomitant]
     Active Substance: BUDESONIDE\FORMOTEROL FUMARATE DIHYDRATE
     Dosage: DOSE 200 STROKES INHALATION
     Route: 065
     Dates: start: 20150310, end: 20150325
  14. FLUDARABINE [Suspect]
     Active Substance: FLUDARABINE PHOSPHATE
     Dosage: CYCLE 2 DAY2  ; PLANNED DOSE 25 MG/M2 , ACTUAL DOSE  25 MG/M2
     Route: 042
     Dates: start: 20131212, end: 20131212
  15. CYCLOPHOSPHAMIDE. [Suspect]
     Active Substance: CYCLOPHOSPHAMIDE
     Dosage: CYCLE 2 DAY1 ; PLANNED DOSE 250 MG/M2 , ACTUAL DOSE  250 MG/M2
     Route: 042
     Dates: start: 20131211, end: 20131211
  16. CYCLOPHOSPHAMIDE. [Suspect]
     Active Substance: CYCLOPHOSPHAMIDE
     Dosage: CYCLE 3 DAY2 ; PLANNED DOSE 250 MG/M2 , ACTUAL DOSE  250 MG/M2
     Route: 042
     Dates: start: 20140109, end: 20140109
  17. CYCLOPHOSPHAMIDE. [Suspect]
     Active Substance: CYCLOPHOSPHAMIDE
     Dosage: CYCLE 6 DAY2 ; PLANNED DOSE 250 MG/M2 , ACTUAL DOSE  250 MG/M2
     Route: 042
     Dates: start: 20140403, end: 20140403
  18. NEXIUM [Concomitant]
     Active Substance: ESOMEPRAZOLE MAGNESIUM
     Indication: PROPHYLAXIS
     Route: 048
     Dates: start: 20140108, end: 20140212
  19. DAFALGAN [Concomitant]
     Active Substance: ACETAMINOPHEN
     Dosage: ONE HOUR BEFOR?GA101 ADMINISTRATION
     Route: 048
     Dates: start: 20131113, end: 20140409
  20. ALLOPURINOL. [Concomitant]
     Active Substance: ALLOPURINOL
     Indication: PROPHYLAXIS
     Dosage: BEFOR GA101?ADMINISTRATION
     Route: 048
     Dates: start: 20131112, end: 20131211
  21. EMEND [Concomitant]
     Active Substance: APREPITANT
     Indication: PROPHYLAXIS
     Route: 048
     Dates: start: 20140205, end: 20140205
  22. PRIVIGEN [Concomitant]
     Active Substance: HUMAN IMMUNOGLOBULIN G
     Route: 042
     Dates: start: 20140602
  23. OBINUTUZUMAB [Suspect]
     Active Substance: OBINUTUZUMAB
     Indication: CHRONIC LYMPHOCYTIC LEUKAEMIA
     Dosage: CYCLE 1 DAY1; PLANNED 25 MG , ACTUAL DOSE  25 MG ?PLANNED INFUSION RATE 12.5 ACTUAL INFUSION RATE 25
     Route: 042
     Dates: start: 20131113, end: 20131113
  24. OBINUTUZUMAB [Suspect]
     Active Substance: OBINUTUZUMAB
     Dosage: CYCLE 1 DAY8; PLANNED 1000 MG , ACTUAL DOSE  1000 MG ?PLANNED INFUSION RATE 400 ACTUAL INFUSION RATE
     Route: 042
     Dates: start: 20131120, end: 20131120
  25. CYCLOPHOSPHAMIDE. [Suspect]
     Active Substance: CYCLOPHOSPHAMIDE
     Dosage: CYCLE 1 DAY3; PLANNED DOSE 250 MG/M2 , ACTUAL DOSE  250 MG/M2
     Route: 042
     Dates: start: 20131115, end: 20131115
  26. CYCLOPHOSPHAMIDE. [Suspect]
     Active Substance: CYCLOPHOSPHAMIDE
     Dosage: CYCLE 5 DAY2 ; PLANNED DOSE 250 MG/M2 , ACTUAL DOSE  250 MG/M2
     Route: 042
     Dates: start: 20140305, end: 20140305
  27. ACIDIUM FOLICOM (UNK INGREDIENTS) [Concomitant]
     Route: 065
     Dates: start: 20140605, end: 20140723
  28. CYCLOPHOSPHAMIDE. [Suspect]
     Active Substance: CYCLOPHOSPHAMIDE
     Dosage: CYCLE 1 DAY2; PLANNED DOSE 250 MG/M2 , ACTUAL DOSE  250 MG/M2
     Route: 042
     Dates: start: 20131114, end: 20131114
  29. CYCLOPHOSPHAMIDE. [Suspect]
     Active Substance: CYCLOPHOSPHAMIDE
     Dosage: CYCLE 4 DAY1 ; PLANNED DOSE 250 MG/M2 , ACTUAL DOSE  250 MG/M2
     Route: 042
     Dates: start: 20140205, end: 20140205
  30. PREDNISOLONE. [Concomitant]
     Active Substance: PREDNISOLONE
     Indication: PROPHYLAXIS
     Dosage: DAY 1 AND 2 OF CYCLE 1, THEN EVERY CYCLE ONLY DAY 1 ONE HOUR BEFOR GA101 ADMINISTRATION
     Route: 065
     Dates: start: 20131103, end: 20140402
  31. OBINUTUZUMAB [Suspect]
     Active Substance: OBINUTUZUMAB
     Dosage: CYCLE 1 DAY2; PLANNED 975 MG , ACTUAL DOSE  975 MG ?PLANNED INFUSION RATE 400 ACTUAL INFUSION RATE 4
     Route: 042
     Dates: start: 20131114, end: 20131114
  32. FLUDARABINE [Suspect]
     Active Substance: FLUDARABINE PHOSPHATE
     Dosage: CYCLE 1 DAY3; PLANNED DOSE 25 MG/M2 , ACTUAL DOSE  25 MG/M2
     Route: 042
     Dates: start: 20131115, end: 20131115
  33. FLUDARABINE [Suspect]
     Active Substance: FLUDARABINE PHOSPHATE
     Dosage: CYCLE 4 DAY1 ; PLANNED DOSE 25 MG/M2 , ACTUAL DOSE  25 MG/M2
     Route: 042
     Dates: start: 20140205, end: 20140205
  34. FLUDARABINE [Suspect]
     Active Substance: FLUDARABINE PHOSPHATE
     Dosage: CYCLE 4 DAY2 ; PLANNED DOSE 25 MG/M2 , ACTUAL DOSE  25 MG/M2
     Route: 042
     Dates: start: 20140206, end: 20140206
  35. FLUDARABINE [Suspect]
     Active Substance: FLUDARABINE PHOSPHATE
     Dosage: CYCLE 4 DAY3 ; PLANNED DOSE 25 MG/M2 , ACTUAL DOSE  25 MG/M2
     Route: 042
     Dates: start: 20140207, end: 20140207
  36. FLUDARABINE [Suspect]
     Active Substance: FLUDARABINE PHOSPHATE
     Dosage: CYCLE 5 DAY2 ; PLANNED DOSE 25 MG/M2 , ACTUAL DOSE  25 MG/M2
     Route: 042
     Dates: start: 20140305, end: 20140305
  37. CYCLOPHOSPHAMIDE. [Suspect]
     Active Substance: CYCLOPHOSPHAMIDE
     Dosage: CYCLE 2 DAY2  ; PLANNED DOSE 250 MG/M2 , ACTUAL DOSE  250 MG/M2
     Route: 042
     Dates: start: 20131212, end: 20131212
  38. CYCLOPHOSPHAMIDE. [Suspect]
     Active Substance: CYCLOPHOSPHAMIDE
     Dosage: CYCLE 6 DAY3 ; PLANNED DOSE 250 MG/M2 , ACTUAL DOSE  250 MG/M2
     Route: 042
     Dates: start: 20140404, end: 20140404
  39. NEXIUM [Concomitant]
     Active Substance: ESOMEPRAZOLE MAGNESIUM
     Route: 048
     Dates: start: 20140212, end: 20140723
  40. VALTREX [Concomitant]
     Active Substance: VALACYCLOVIR HYDROCHLORIDE
     Indication: PROPHYLAXIS
     Route: 048
     Dates: start: 20131113, end: 20140723
  41. ZOFRAN [Concomitant]
     Active Substance: ONDANSETRON HYDROCHLORIDE
     Route: 048
     Dates: start: 20140115, end: 20140122
  42. ZOFRAN [Concomitant]
     Active Substance: ONDANSETRON HYDROCHLORIDE
     Route: 048
     Dates: start: 20140409, end: 20140603
  43. RINGER-LACTAT [Concomitant]
     Route: 042
     Dates: start: 20140507, end: 20140514
  44. EXCIPIAL U LIPOLOTION [Concomitant]
     Route: 061
     Dates: start: 20140320, end: 20140402
  45. CLAMOXYL (SWITZERLAND) [Concomitant]
     Route: 048
     Dates: start: 20140515, end: 20140522
  46. FLUDARABINE [Suspect]
     Active Substance: FLUDARABINE PHOSPHATE
     Indication: CHRONIC LYMPHOCYTIC LEUKAEMIA
     Dosage: CYCLE 1 DAY1; PLANNED DOSE 25 MG/M2 , ACTUAL DOSE  25 MG/M2?MOST RECENT DOSE ON 04/APR/2014
     Route: 042
     Dates: start: 20131113, end: 20131113
  47. FLUDARABINE [Suspect]
     Active Substance: FLUDARABINE PHOSPHATE
     Dosage: CYCLE 2 DAY1 ; PLANNED DOSE 25 MG/M2 , ACTUAL DOSE  25 MG/M2
     Route: 042
     Dates: start: 20131211, end: 20131211
  48. FLUDARABINE [Suspect]
     Active Substance: FLUDARABINE PHOSPHATE
     Dosage: CYCLE 3 DAY3 ; PLANNED DOSE 25 MG/M2 , ACTUAL DOSE  25 MG/M2
     Route: 042
     Dates: start: 20140110, end: 20140110
  49. FLUDARABINE [Suspect]
     Active Substance: FLUDARABINE PHOSPHATE
     Dosage: CYCLE 5 DAY3 ; PLANNED DOSE 25 MG/M2 , ACTUAL DOSE  25 MG/M2
     Route: 042
     Dates: start: 20140306, end: 20140306
  50. CYCLOPHOSPHAMIDE. [Suspect]
     Active Substance: CYCLOPHOSPHAMIDE
     Dosage: CYCLE 2 DAY3  ; PLANNED DOSE 250 MG/M2 , ACTUAL DOSE  250 MG/M2
     Route: 042
     Dates: start: 20131213, end: 20131213
  51. CYCLOPHOSPHAMIDE. [Suspect]
     Active Substance: CYCLOPHOSPHAMIDE
     Dosage: CYCLE 3 DAY1 ; PLANNED DOSE 250 MG/M2 , ACTUAL DOSE  250 MG/M2
     Route: 042
     Dates: start: 20140108, end: 20140108
  52. CYCLOPHOSPHAMIDE. [Suspect]
     Active Substance: CYCLOPHOSPHAMIDE
     Dosage: CYCLE 3 DAY3 ; PLANNED DOSE 250 MG/M2 , ACTUAL DOSE  250 MG/M2
     Route: 042
     Dates: start: 20140110, end: 20140110
  53. CYCLOPHOSPHAMIDE. [Suspect]
     Active Substance: CYCLOPHOSPHAMIDE
     Dosage: CYCLE 4 DAY2 ; PLANNED DOSE 250 MG/M2 , ACTUAL DOSE  250 MG/M2
     Route: 042
     Dates: start: 20140206, end: 20140206
  54. CYCLOPHOSPHAMIDE. [Suspect]
     Active Substance: CYCLOPHOSPHAMIDE
     Dosage: CYCLE 5 DAY3 ; PLANNED DOSE 250 MG/M2 , ACTUAL DOSE  250 MG/M2
     Route: 042
     Dates: start: 20140306, end: 20140306
  55. CYCLOPHOSPHAMIDE. [Suspect]
     Active Substance: CYCLOPHOSPHAMIDE
     Dosage: CYCLE 6 DAY1 ; PLANNED DOSE 250 MG/M2 , ACTUAL DOSE  250 MG/M2
     Route: 042
     Dates: start: 20140402, end: 20140402
  56. EMEND [Concomitant]
     Active Substance: APREPITANT
     Route: 048
     Dates: start: 20140402, end: 20140402
  57. PRIVIGEN [Concomitant]
     Active Substance: HUMAN IMMUNOGLOBULIN G
     Route: 042
     Dates: start: 20140607, end: 20140607
  58. OBINUTUZUMAB [Suspect]
     Active Substance: OBINUTUZUMAB
     Dosage: CYCLE 3 DAY 1; PLANNED 1000 MG , ACTUAL DOSE  1000 MG ?PLANNED INFUSION RATE 400 ACTUAL INFUSION RAT
     Route: 042
     Dates: start: 20140108, end: 20140108
  59. OBINUTUZUMAB [Suspect]
     Active Substance: OBINUTUZUMAB
     Dosage: CYCLE 5 DAY 1; PLANNED 1000 MG , ACTUAL DOSE  1000 MG ?PLANNED INFUSION RATE 400 ACTUAL INFUSION RAT
     Route: 042
     Dates: start: 20140304, end: 20140304
  60. FLUDARABINE [Suspect]
     Active Substance: FLUDARABINE PHOSPHATE
     Dosage: CYCLE 1 DAY2; PLANNED DOSE 25 MG/M2 , ACTUAL DOSE  25 MG/M2
     Route: 042
     Dates: start: 20131114, end: 20131114
  61. FLUDARABINE [Suspect]
     Active Substance: FLUDARABINE PHOSPHATE
     Dosage: CYCLE 6 DAY3 ; PLANNED DOSE 25 MG/M2 , ACTUAL DOSE  25 MG/M2
     Route: 042
     Dates: start: 20140404, end: 20140404
  62. CEFEPIME [Concomitant]
     Active Substance: CEFEPIME HYDROCHLORIDE
     Route: 042
     Dates: start: 20131224, end: 20131226
  63. DAFALGAN [Concomitant]
     Active Substance: ACETAMINOPHEN
     Route: 048
     Dates: start: 20131127, end: 20140409
  64. BACTRIM [Concomitant]
     Active Substance: SULFAMETHOXAZOLE\TRIMETHOPRIM
     Indication: PROPHYLAXIS
     Route: 048
     Dates: start: 20131113, end: 20140723
  65. IMODIUM [Concomitant]
     Active Substance: LOPERAMIDE HYDROCHLORIDE
     Dosage: DOSE 7 UNIT NOT REPORTED,
     Route: 048
     Dates: start: 20140310, end: 20140323
  66. TAVEGYL [Concomitant]
     Active Substance: CLEMASTINE FUMARATE
     Indication: PROPHYLAXIS
     Dosage: ONE HOUR BEFOR?GA101?ADMINISTRATION
     Route: 042
     Dates: start: 20131113, end: 20140402
  67. MUNDISAL (SWITZERLAND) [Concomitant]
     Route: 061
     Dates: start: 20140312, end: 20140402
  68. EMEND [Concomitant]
     Active Substance: APREPITANT
     Route: 048
     Dates: start: 20140305, end: 20140306
  69. CLAMOXYL (SWITZERLAND) [Concomitant]
     Route: 048
     Dates: start: 20140515, end: 20140521
  70. AUGMENTIN [Concomitant]
     Active Substance: AMOXICILLIN\CLAVULANATE POTASSIUM
     Route: 048
     Dates: start: 20150310, end: 20150325
  71. OBINUTUZUMAB [Suspect]
     Active Substance: OBINUTUZUMAB
     Dosage: CYCLE 1 DAY 15; PLANNED 1000 MG , ACTUAL DOSE  1000 MG ?PLANNED INFUSION RATE 400 ACTUAL INFUSION RA
     Route: 042
     Dates: start: 20131127, end: 20131127
  72. OBINUTUZUMAB [Suspect]
     Active Substance: OBINUTUZUMAB
     Dosage: CYCLE 4 DAY 1; PLANNED 1000 MG , ACTUAL DOSE  1000 MG ?PLANNED INFUSION RATE 400 ACTUAL INFUSION RAT
     Route: 042
     Dates: start: 20140205, end: 20140205
  73. OBINUTUZUMAB [Suspect]
     Active Substance: OBINUTUZUMAB
     Dosage: CYCLE 6 DAY 1; PLANNED 1000 MG , ACTUAL DOSE  1000 MG ?PLANNED INFUSION RATE 400 ACTUAL INFUSION RAT
     Route: 042
     Dates: start: 20140402, end: 20140402
  74. FLUDARABINE [Suspect]
     Active Substance: FLUDARABINE PHOSPHATE
     Dosage: CYCLE 5 DAY1 ; PLANNED DOSE 25 MG/M2 , ACTUAL DOSE  25 MG/M2
     Route: 042
     Dates: start: 20140304, end: 20140304
  75. FLUDARABINE [Suspect]
     Active Substance: FLUDARABINE PHOSPHATE
     Dosage: CYCLE 6 DAY1 ; PLANNED DOSE 25 MG/M2 , ACTUAL DOSE  25 MG/M2
     Route: 042
     Dates: start: 20140402, end: 20140402
  76. FLUDARABINE [Suspect]
     Active Substance: FLUDARABINE PHOSPHATE
     Dosage: CYCLE 6 DAY2 ; PLANNED DOSE 25 MG/M2 , ACTUAL DOSE  25 MG/M2
     Route: 042
     Dates: start: 20140403, end: 20140403
  77. CEFEPIME [Concomitant]
     Active Substance: CEFEPIME HYDROCHLORIDE
     Dosage: DOSE 2 OTHER
     Route: 048
     Dates: start: 20140507, end: 20140514
  78. SOLCOSERYL [Concomitant]
     Active Substance: SOLCOSERYL
     Dosage: PULP
     Route: 048
     Dates: start: 20140312, end: 20140402
  79. EMEND [Concomitant]
     Active Substance: APREPITANT
     Route: 048
     Dates: start: 20140304, end: 20140304

REACTIONS (1)
  - Acute myeloid leukaemia [Recovering/Resolving]

NARRATIVE: CASE EVENT DATE: 20161012
